FAERS Safety Report 9171250 (Version 2)
Quarter: 2013Q2

REPORT INFORMATION
  Report Type: Report from Study
  Country: AR (occurrence: AR)
  Receive Date: 20130319
  Receipt Date: 20130524
  Transmission Date: 20140414
  Serious: Yes (Death, Hospitalization)
  Sender: FDA-Public Use
  Company Number: AR-BRISTOL-MYERS SQUIBB COMPANY-17472879

PATIENT
  Age: 84 Year
  Sex: Male

DRUGS (3)
  1. ERBITUX SOLN FOR INF 5MG/ML [Suspect]
     Indication: COLON CANCER STAGE IV
     Route: 042
     Dates: start: 20121210, end: 20130129
  2. FLUOROURACIL [Concomitant]
     Indication: COLON CANCER STAGE IV
     Dates: end: 20130129
  3. OXALIPLATIN [Concomitant]
     Indication: COLON CANCER STAGE IV
     Dates: end: 20130129

REACTIONS (1)
  - Interstitial lung disease [Fatal]
